FAERS Safety Report 8984170 (Version 1)
Quarter: 2012Q4

REPORT INFORMATION
  Report Type: Spontaneous
  Country: DE (occurrence: None)
  Receive Date: 20121212
  Receipt Date: 20121212
  Transmission Date: 20130627
  Serious: Yes (Hospitalization)
  Sender: FDA-Public Use
  Company Number: GER/GER/12/0026890

PATIENT
  Age: 14 Year
  Sex: Male

DRUGS (8)
  1. IBUBETA 400 AKUT (IBUPROFEN) [Suspect]
     Route: 048
     Dates: start: 20121006, end: 20121007
  2. IBUBETA 400 AKUT (IBUPROFEN) [Suspect]
     Route: 048
     Dates: start: 20121006, end: 20121007
  3. IBUBETA 400 AKUT (IBUPROFEN) [Suspect]
     Route: 048
     Dates: start: 20121006, end: 20121007
  4. IBUBETA 400 AKUT (IBUPROFEN) [Suspect]
     Route: 048
     Dates: start: 20121006, end: 20121007
  5. IBUBETA 400 AKUT (IBUPROFEN) [Suspect]
     Route: 048
     Dates: start: 20121109
  6. IBUBETA 400 AKUT (IBUPROFEN) [Suspect]
     Route: 048
     Dates: start: 20121109
  7. IBUBETA 400 AKUT (IBUPROFEN) [Suspect]
     Route: 048
     Dates: start: 20121109
  8. IBUBETA 400 AKUT (IBUPROFEN) [Suspect]
     Route: 048
     Dates: start: 20121109

REACTIONS (7)
  - Illusion [None]
  - Headache [None]
  - Dependent personality disorder [None]
  - Chest discomfort [None]
  - Palpitations [None]
  - Dysgeusia [None]
  - Hypoaesthesia [None]
